FAERS Safety Report 14771208 (Version 1)
Quarter: 2018Q2

REPORT INFORMATION
  Report Type: Spontaneous
  Country: RO (occurrence: RO)
  Receive Date: 20180417
  Receipt Date: 20180417
  Transmission Date: 20180711
  Serious: Yes (Hospitalization, Other)
  Sender: FDA-Public Use
  Company Number: RO-SHIRE-RO201809845AA

PATIENT

DRUGS (9)
  1. REFACTO [Suspect]
     Active Substance: ANTIHEMOPHILIC FACTOR, HUMAN RECOMBINANT RESIDUES 743-1636 DELETED
     Indication: FACTOR VIII DEFICIENCY
     Dosage: 1000 IU, UNK
     Route: 065
     Dates: end: 20170110
  2. IMMUNATE STIM PLUS [Suspect]
     Active Substance: ANTIHEMOPHILIC FACTOR HUMAN
     Dosage: 500-1500 IU AFTER EVERY FEW DAYS
     Route: 065
     Dates: start: 20150223, end: 20180227
  3. KOGENATE [Suspect]
     Active Substance: ANTIHEMOPHILIC FACTOR, HUMAN RECOMBINANT
     Indication: FACTOR VIII DEFICIENCY
     Dosage: 1000 IU, UNK
     Route: 065
     Dates: end: 20171006
  4. ADVATE [Suspect]
     Active Substance: ANTIHEMOPHILIC FACTOR, HUMAN RECOMBINANT
     Indication: FACTOR VIII DEFICIENCY
     Dosage: 1000 IU, UNK
     Route: 065
     Dates: end: 20171027
  5. ADVATE [Suspect]
     Active Substance: ANTIHEMOPHILIC FACTOR, HUMAN RECOMBINANT
     Dosage: 750 IU-1000 IU, EVERY FEW DAYS
     Route: 065
     Dates: start: 20171112, end: 20171201
  6. FACTOR VIII ANTIHEMOFILICO UNC [Suspect]
     Active Substance: ANTIHEMOPHILIC FACTOR HUMAN
     Indication: FACTOR VIII DEFICIENCY
     Route: 065
  7. KOGENATE [Suspect]
     Active Substance: ANTIHEMOPHILIC FACTOR, HUMAN RECOMBINANT
     Dosage: 1000 IU-2000 IU, EVERY FEW DAYS
     Route: 065
     Dates: start: 20171009, end: 20171101
  8. REFACTO [Suspect]
     Active Substance: ANTIHEMOPHILIC FACTOR, HUMAN RECOMBINANT RESIDUES 743-1636 DELETED
     Dosage: 1000 IU- 1500 IU , EVERY FEW DAYS
     Route: 065
     Dates: start: 20170111, end: 20170320
  9. IMMUNATE STIM PLUS [Suspect]
     Active Substance: ANTIHEMOPHILIC FACTOR HUMAN
     Indication: FACTOR VIII DEFICIENCY
     Dosage: 1000 IU, UNK
     Route: 065
     Dates: end: 20150206

REACTIONS (4)
  - Pharyngeal oedema [Unknown]
  - Swelling [Unknown]
  - Vascular neoplasm [Unknown]
  - Mandibular mass [Unknown]

NARRATIVE: CASE EVENT DATE: 20170501
